FAERS Safety Report 5803250-2 (Version None)
Quarter: 2008Q3

REPORT INFORMATION
  Report Type: 
  Country: None (occurrence: None)
  Receive Date: 20080708
  Receipt Date: 20080701
  Transmission Date: 20090109
  Serious: Yes (Other)
  Sender: FDA-Public Use
  Company Number: JP-BAYER-200811450BYL

PATIENT
  Age: 70 Year
  Sex: Male

DRUGS (2)
  1. NEXAVAR [Suspect]
     Indication: DRUG USE FOR UNKNOWN INDICATION
     Dosage: UNIT DOSE: 200 MG
     Route: 048
  2. NEXAVAR [Suspect]
     Route: 048
     Dates: start: 20080701

REACTIONS (2)
  - HYPOTENSION [None]
  - PYREXIA [None]
